FAERS Safety Report 4855651-7 (Version None)
Quarter: 2005Q4

REPORT INFORMATION
  Report Type: 
  Country: None (occurrence: None)
  Receive Date: 20051216
  Receipt Date: 20051207
  Transmission Date: 20060501
  Serious: Yes (Other)
  Sender: FDA-Public Use
  Company Number: PHBS2005BR18227

PATIENT
  Age: 57 Year
  Sex: Female

DRUGS (3)
  1. ZOMETA [Suspect]
     Indication: METASTASES TO BONE
     Route: 065
  2. ANTINEOPLASTIC AGENTS [Concomitant]
  3. ANALGESICS [Concomitant]

REACTIONS (2)
  - OSTEOMYELITIS [None]
  - PURULENT DISCHARGE [None]
